FAERS Safety Report 8392182-4 (Version None)
Quarter: 2012Q2

REPORT INFORMATION
  Report Type: 
  Country: None (occurrence: None)
  Receive Date: 20120529
  Receipt Date: 20120518
  Transmission Date: 20120825
  Serious: Yes (Death)
  Sender: FDA-Public Use
  Company Number: US-ROCHE-1052664

PATIENT
  Sex: Female
  Weight: 58.4 kg

DRUGS (2)
  1. PACLITAXEL [Suspect]
     Indication: OVARIAN CANCER
  2. BEVACIZUMAB [Suspect]
     Indication: OVARIAN CANCER
     Route: 042
     Dates: start: 20111116, end: 20120208

REACTIONS (3)
  - DISEASE PROGRESSION [None]
  - URETERIC STENOSIS [None]
  - HYDRONEPHROSIS [None]
